FAERS Safety Report 21378965 (Version 3)
Quarter: 2022Q4

REPORT INFORMATION
  Report Type: Spontaneous
  Country: US (occurrence: US)
  Receive Date: 20220927
  Receipt Date: 20221221
  Transmission Date: 20230113
  Serious: No
  Sender: FDA-Public Use
  Company Number: US-FDC-2022USSPO00061

PATIENT
  Age: 74 Year
  Sex: Female
  Weight: 81.6 kg

DRUGS (3)
  1. CIPROFLOXACIN [Suspect]
     Active Substance: CIPROFLOXACIN
     Indication: Cataract operation
     Dosage: 1 DROP
     Route: 047
     Dates: start: 20220815, end: 20220907
  2. Prednisolone acetate opthalmic solution 1% [Concomitant]
     Indication: Product used for unknown indication
     Route: 065
  3. Ketorolac opthalmic solution 0.5% [Concomitant]
     Indication: Product used for unknown indication
     Route: 065

REACTIONS (3)
  - Diarrhoea [Not Recovered/Not Resolved]
  - Dehydration [Not Recovered/Not Resolved]
  - Product substitution issue [Unknown]

NARRATIVE: CASE EVENT DATE: 20220801
